FAERS Safety Report 9933430 (Version 1)
Quarter: 2014Q1

REPORT INFORMATION
  Report Type: Report from Study
  Country: US (occurrence: US)
  Receive Date: 20140228
  Receipt Date: 20140228
  Transmission Date: 20141002
  Serious: Yes (Other)
  Sender: FDA-Public Use
  Company Number: US-MYLANLABS-2013S1019630

PATIENT
  Age: 20 Year
  Sex: Male

DRUGS (2)
  1. AMNESTEEM CAPSULES [Suspect]
     Indication: ACNE CYSTIC
     Dosage: ALTERNATES WITH THE 80MG EVERY OTHER DAY, USING THE 40 MG CAPSULES
     Dates: start: 201305, end: 20130829
  2. AMNESTEEM CAPSULES [Suspect]
     Indication: ACNE CYSTIC
     Dosage: ALTERNATES WITH THE 40MG EVERY OTHER DAY.
     Dates: start: 201305, end: 20130829

REACTIONS (1)
  - Lumbar vertebral fracture [Not Recovered/Not Resolved]
